FAERS Safety Report 4534943-5 (Version None)
Quarter: 2004Q4

REPORT INFORMATION
  Report Type: 
  Country: None (occurrence: None)
  Receive Date: 20041222
  Receipt Date: 20040830
  Transmission Date: 20050328
  Serious: Yes (Other)
  Sender: FDA-Public Use
  Company Number: US-BRISTOL-MYERS SQUIBB COMPANY-12687513

PATIENT
  Age: 66 Year
  Sex: Female
  Weight: 79 kg

DRUGS (4)
  1. PRAVACHOL [Suspect]
     Indication: HYPERLIPIDAEMIA
     Route: 048
     Dates: start: 20031114, end: 20040430
  2. HYDROCHLOROTHIAZIDE [Concomitant]
  3. VIOXX [Concomitant]
  4. PREVACID [Concomitant]

REACTIONS (2)
  - BLOOD CREATINE PHOSPHOKINASE INCREASED [None]
  - MUSCULOSKELETAL PAIN [None]
